FAERS Safety Report 23390763 (Version 1)
Quarter: 2024Q1

REPORT INFORMATION
  Report Type: Spontaneous
  Country: US (occurrence: US)
  Receive Date: 20240111
  Receipt Date: 20240111
  Transmission Date: 20240410
  Serious: No
  Sender: FDA-Public Use
  Company Number: US-AMGEN-USASP2024004002

PATIENT
  Age: 69 Year
  Sex: Male

DRUGS (2)
  1. TAVNEOS [Suspect]
     Active Substance: AVACOPAN
     Indication: Anti-neutrophil cytoplasmic antibody positive vasculitis
     Dosage: 30 MILLIGRAM, BID (TAKE 3 CAPSULES (30 MG) BY MOUTH TWICE DAILY WITH FOOD FOR VASCULITIS)
     Route: 048
     Dates: start: 20231219
  2. TAVNEOS [Suspect]
     Active Substance: AVACOPAN
     Indication: Vasculitis

REACTIONS (3)
  - Fatigue [Unknown]
  - Anxiety [Unknown]
  - Headache [Unknown]
